FAERS Safety Report 5366103-2 (Version None)
Quarter: 2007Q2

REPORT INFORMATION
  Report Type: 
  Country: None (occurrence: None)
  Receive Date: 20070611
  Receipt Date: 20061024
  Transmission Date: 20071010
  Serious: Yes (Other)
  Sender: FDA-Public Use
  Company Number: USA-2006-0024809

PATIENT
  Age: 20 Year
  Sex: Male
  Weight: 90.7 kg

DRUGS (1)
  1. OXYCONTIN [Suspect]
     Indication: DRUG ABUSER
     Dosage: NASAL
     Route: 045

REACTIONS (1)
  - DRUG ABUSER [None]
